FAERS Safety Report 19125143 (Version 2)
Quarter: 2021Q2

REPORT INFORMATION
  Report Type: Report from Study
  Country: GR (occurrence: GR)
  Receive Date: 20210412
  Receipt Date: 20210414
  Transmission Date: 20210717
  Serious: Yes (Death, Life-Threatening, Hospitalization)
  Sender: FDA-Public Use
  Company Number: GR-CELGENEUS-GRC-20210401817

PATIENT
  Age: 70 Year
  Sex: Female
  Weight: 70 kg

DRUGS (15)
  1. CYRAMZA [Suspect]
     Active Substance: RAMUCIRUMAB
     Indication: PANCREATIC CARCINOMA
     Dosage: 560 MILLIGRAM
     Route: 041
     Dates: start: 20210329, end: 20210329
  2. ABRAXANE [Suspect]
     Active Substance: PACLITAXEL
     Indication: PANCREATIC CARCINOMA
     Dosage: 169 MILLIGRAM
     Route: 041
     Dates: start: 20210329, end: 20210405
  3. XOZAL [Concomitant]
     Active Substance: LEVOCETIRIZINE
     Indication: PRODUCT USED FOR UNKNOWN INDICATION
     Dosage: 5 MILLIGRAM
     Route: 041
     Dates: start: 20210329, end: 20210405
  4. DEPALGOS [Concomitant]
     Active Substance: ACETAMINOPHEN\OXYCODONE HYDROCHLORIDE
     Indication: ABDOMINAL PAIN UPPER
     Dosage: 330 MILLIGRAM
     Route: 048
     Dates: start: 20210316
  5. GEMCITABINE. [Suspect]
     Active Substance: GEMCITABINE
     Indication: PANCREATIC CARCINOMA
     Dosage: 1352 MILLIGRAM
     Route: 041
     Dates: start: 20210329, end: 20210405
  6. ONDANSETRON [Concomitant]
     Active Substance: ONDANSETRON
     Indication: PRODUCT USED FOR UNKNOWN INDICATION
     Dosage: 8 MILLIGRAM
     Route: 041
     Dates: start: 20210329, end: 20210405
  7. BINOCRIT [Concomitant]
     Active Substance: ERYTHROPOIETIN
     Indication: ANAEMIA
     Dosage: 4000 UI
     Route: 065
     Dates: start: 20210316
  8. BUVERA [Concomitant]
     Indication: ABDOMINAL PAIN UPPER
     Dosage: 35 MILLIGRAM
     Route: 065
     Dates: start: 20210316
  9. GLUCOPHAGE [Concomitant]
     Active Substance: METFORMIN HYDROCHLORIDE
     Indication: DIABETES MELLITUS
     Dosage: 850 MILLIGRAM
     Route: 048
     Dates: start: 20210301, end: 20210406
  10. FENISTIL [Concomitant]
     Active Substance: DIMETHINDENE
     Indication: PRODUCT USED FOR UNKNOWN INDICATION
     Dosage: 1 AMP
     Route: 041
     Dates: start: 20210329, end: 20210405
  11. ARIXTRA [Concomitant]
     Active Substance: FONDAPARINUX SODIUM
     Indication: PROPHYLAXIS
     Dosage: 2.5 MILLIGRAM
     Route: 065
     Dates: start: 20210322
  12. ATROST [Concomitant]
     Active Substance: ATORVASTATIN CALCIUM
     Indication: DYSLIPIDAEMIA
     Dosage: 10 MILLIGRAM
     Route: 048
     Dates: start: 20150101, end: 20210406
  13. DEXAMETHASONE. [Concomitant]
     Active Substance: DEXAMETHASONE
     Indication: PRODUCT USED FOR UNKNOWN INDICATION
     Dosage: 8 MILLIGRAM
     Route: 041
     Dates: start: 20210329, end: 20210405
  14. AEROLIN [Concomitant]
     Active Substance: ALBUTEROL
     Indication: RESPIRATORY DISORDER
     Dosage: 5 MILLIGRAM
     Route: 065
     Dates: start: 20150201, end: 20210406
  15. DEPON [Concomitant]
     Active Substance: ACETAMINOPHEN
     Indication: ABDOMINAL PAIN UPPER
     Dosage: 500 MILLIGRAM
     Route: 048
     Dates: start: 20210316

REACTIONS (1)
  - Septic shock [Fatal]

NARRATIVE: CASE EVENT DATE: 20210407
